FAERS Safety Report 4786817-2 (Version None)
Quarter: 2005Q4

REPORT INFORMATION
  Report Type: 
  Country: None (occurrence: None)
  Receive Date: 20051004
  Receipt Date: 20050923
  Transmission Date: 20060501
  Serious: Yes (Hospitalization, Disabling, Other)
  Sender: FDA-Public Use
  Company Number: PHBS2005CH14009

PATIENT
  Age: 61 Year
  Sex: Male

DRUGS (6)
  1. AREDIA [Suspect]
     Indication: MULTIPLE MYELOMA
     Dosage: UNK, QMO
     Dates: start: 19941123, end: 19960118
  2. AREDIA [Suspect]
     Dosage: UNK, QMO
     Dates: start: 19970901, end: 20050601
  3. INTERFERON ALFA [Concomitant]
     Dates: start: 19940901, end: 20050101
  4. TRIATEC [Concomitant]
  5. TORSEMIDE [Concomitant]
  6. SURMONTIL [Concomitant]

REACTIONS (18)
  - ABSCESS ORAL [None]
  - ACTINOMYCOSIS [None]
  - CARDIOMYOPATHY [None]
  - DYSPNOEA [None]
  - NAUSEA [None]
  - NIGHT SWEATS [None]
  - OEDEMA PERIPHERAL [None]
  - OSTEOMYELITIS [None]
  - OSTEONECROSIS [None]
  - PAIN IN JAW [None]
  - PRIMARY SEQUESTRUM [None]
  - PYREXIA [None]
  - RENAL FAILURE CHRONIC [None]
  - SUPERINFECTION [None]
  - SURGERY [None]
  - TOOTH EXTRACTION [None]
  - URINE OUTPUT DECREASED [None]
  - WEIGHT DECREASED [None]
